FAERS Safety Report 5573163-2 (Version None)
Quarter: 2007Q4

REPORT INFORMATION
  Report Type: 
  Country: None (occurrence: None)
  Receive Date: 20071224
  Receipt Date: 20071219
  Transmission Date: 20080405
  Serious: Yes (Life-Threatening)
  Sender: FDA-Public Use
  Company Number: IT-BAYER-200718447GPV

PATIENT
  Age: 73 Year
  Sex: Male

DRUGS (1)
  1. ULTRAVIST 370 [Suspect]
     Dosage: TOTAL DAILY DOSE: 110 ML
     Route: 042
     Dates: start: 20071214, end: 20071214

REACTIONS (2)
  - BRONCHOSPASM [None]
  - CARDIO-RESPIRATORY ARREST [None]
